FAERS Safety Report 16649435 (Version 1)
Quarter: 2019Q3

REPORT INFORMATION
  Report Type: Other
  Country: None (occurrence: FR)
  Receive Date: 20190730
  Receipt Date: 20190730
  Transmission Date: 20191004
  Serious: Yes (Other)
  Sender: FDA-Public Use
  Company Number: FR-ALSI-201900339

PATIENT
  Age: 15 Year
  Sex: Female

DRUGS (5)
  1. NITROUS OXIDE. [Suspect]
     Active Substance: NITROUS OXIDE
     Indication: SICKLE CELL ANAEMIA WITH CRISIS
     Route: 055
  2. OXYGEN. [Concomitant]
     Active Substance: OXYGEN
     Route: 055
  3. PARACETAMOL [Concomitant]
     Active Substance: ACETAMINOPHEN
  4. IBUPROFENE [Concomitant]
     Active Substance: IBUPROFEN
  5. MORPHINE SULFATE. [Concomitant]
     Active Substance: MORPHINE SULFATE

REACTIONS (9)
  - Sensory disturbance [Not Recovered/Not Resolved]
  - Off label use [Recovering/Resolving]
  - Hallucination, tactile [Unknown]
  - Gait disturbance [Not Recovered/Not Resolved]
  - Intentional overdose [Not Recovered/Not Resolved]
  - Hallucination, visual [Unknown]
  - Vitamin B12 deficiency [Recovered/Resolved]
  - Drug dependence [Unknown]
  - Pancytopenia [Unknown]
